FAERS Safety Report 5597205-3 (Version None)
Quarter: 2007Q4

REPORT INFORMATION
  Report Type: 
  Country: None (occurrence: None)
  Receive Date: 20071221
  Receipt Date: 20070921
  Transmission Date: 20080405
  Serious: No
  Sender: FDA-Public Use
  Company Number: US-CVT-070161

PATIENT
  Age: 85 Year
  Sex: Male

DRUGS (9)
  1. RANEXA [Suspect]
     Indication: ANGINA PECTORIS
     Dosage: 500 MG, BID, ORAL
     Route: 048
     Dates: start: 20070913
  2. PLAVIX [Concomitant]
  3. ARICEPT [Concomitant]
  4. LISINOPRIL/00894001/ (LISINOPRIL) [Concomitant]
  5. LORAZEPAM [Concomitant]
  6. LOVASTATIN [Concomitant]
  7. METOPROLOL/00376901/ (METOPROLOL) [Concomitant]
  8. SEROQUEL [Concomitant]
  9. FLOMAX/01280302/ (TAMSULOSIN HYDROCHLORIDE) [Concomitant]

REACTIONS (1)
  - SOMNOLENCE [None]
